FAERS Safety Report 11587199 (Version 1)
Quarter: 2015Q4

REPORT INFORMATION
  Report Type: Spontaneous
  Country: US (occurrence: US)
  Receive Date: 20151001
  Receipt Date: 20151001
  Transmission Date: 20160304
  Serious: No
  Sender: FDA-Public Use
  Company Number: US-PFIZER INC-2015325963

PATIENT
  Age: 72 Year

DRUGS (1)
  1. LYRICA [Suspect]
     Active Substance: PREGABALIN
     Indication: GENITAL HERPES ZOSTER
     Dosage: 50 MG, 3X/DAY

REACTIONS (1)
  - Pain [Unknown]
